FAERS Safety Report 24013134 (Version 2)
Quarter: 2024Q2

REPORT INFORMATION
  Report Type: Report from Study
  Country: US (occurrence: US)
  Receive Date: 20240626
  Receipt Date: 20240630
  Transmission Date: 20240716
  Serious: Yes (Other)
  Sender: FDA-Public Use
  Company Number: US-ABBVIE-5567406

PATIENT
  Sex: Female

DRUGS (4)
  1. SKYRIZI [Suspect]
     Active Substance: RISANKIZUMAB-RZAA
     Indication: Crohn^s disease
     Dosage: WEEK 0, FORM STRENGTH: 600 MG
     Route: 042
     Dates: start: 20231221, end: 20231221
  2. SKYRIZI [Suspect]
     Active Substance: RISANKIZUMAB-RZAA
     Indication: Crohn^s disease
     Dosage: WEEK 12, FORM STRENGTH: 600 MG
     Route: 042
     Dates: start: 202403
  3. SKYRIZI [Suspect]
     Active Substance: RISANKIZUMAB-RZAA
     Indication: Crohn^s disease
     Dosage: WEEK 4, FORM STRENGTH: 600 MG
     Route: 042
     Dates: start: 202402, end: 202402
  4. ENTYVIO [Concomitant]
     Active Substance: VEDOLIZUMAB
     Indication: Product used for unknown indication

REACTIONS (17)
  - Deep vein thrombosis [Unknown]
  - Maternal exposure during pregnancy [Unknown]
  - Headache [Unknown]
  - Diarrhoea [Not Recovered/Not Resolved]
  - Haematochezia [Not Recovered/Not Resolved]
  - Fatigue [Not Recovered/Not Resolved]
  - Drug ineffective [Unknown]
  - Asthenia [Not Recovered/Not Resolved]
  - Paranasal sinus discomfort [Unknown]
  - General physical health deterioration [Not Recovered/Not Resolved]
  - Nasopharyngitis [Recovered/Resolved]
  - Flatulence [Unknown]
  - Unevaluable event [Unknown]
  - Cough [Unknown]
  - Live birth [Unknown]
  - Arthralgia [Not Recovered/Not Resolved]
  - Gastrointestinal sounds abnormal [Not Recovered/Not Resolved]

NARRATIVE: CASE EVENT DATE: 20240101
